FAERS Safety Report 21062796 (Version 2)
Quarter: 2022Q3

REPORT INFORMATION
  Report Type: Report from Study
  Country: JP (occurrence: JP)
  Receive Date: 20220711
  Receipt Date: 20220810
  Transmission Date: 20221027
  Serious: Yes (Death, Hospitalization, Other)
  Sender: FDA-Public Use
  Company Number: JP-ONO-2022JP018646

PATIENT
  Age: 84 Year
  Sex: Male
  Weight: 53.5 kg

DRUGS (10)
  1. ETELCALCETIDE [Suspect]
     Active Substance: ETELCALCETIDE
     Indication: Hyperparathyroidism secondary
     Dosage: 5 MG, Q84H
     Route: 010
     Dates: start: 20200211, end: 20200418
  2. ETELCALCETIDE [Suspect]
     Active Substance: ETELCALCETIDE
     Dosage: 5 MG, Q56H
     Route: 010
     Dates: start: 20200420
  3. Calfina [Concomitant]
     Dosage: 0.25 MICROGRAM, QD
     Route: 048
     Dates: start: 20190702, end: 20200210
  4. Calfina [Concomitant]
     Dosage: 0.5 MICROGRAM, QD
     Dates: start: 20200211
  5. MIRCERA [Concomitant]
     Active Substance: METHOXY POLYETHYLENE GLYCOL-EPOETIN BETA
     Dosage: 50 MICROGRAM, QWK
     Route: 065
     Dates: end: 20190806
  6. MIRCERA [Concomitant]
     Active Substance: METHOXY POLYETHYLENE GLYCOL-EPOETIN BETA
     Dosage: 75 MICROGRAM, Q4WK
     Dates: start: 20201222, end: 20211107
  7. MIRCERA [Concomitant]
     Active Substance: METHOXY POLYETHYLENE GLYCOL-EPOETIN BETA
     Dosage: 50 MICROGRAM, Q4WK
     Dates: start: 20211109
  8. Fesin [Concomitant]
     Dosage: 40 MG, QW
     Route: 065
     Dates: start: 20191119, end: 20201117
  9. BIXALOMER [Concomitant]
     Active Substance: BIXALOMER
     Dosage: 750 MG, EVERYDAY
     Route: 048
     Dates: start: 20190108, end: 20201109
  10. CALCIUM CARBONATE [Concomitant]
     Active Substance: CALCIUM CARBONATE
     Dosage: 500 MG, EVERYDAY
     Route: 048
     Dates: start: 20201110

REACTIONS (4)
  - Cerebral infarction [Fatal]
  - Cholecystitis [Unknown]
  - Shunt stenosis [Recovered/Resolved]
  - Shunt stenosis [Recovered/Resolved]

NARRATIVE: CASE EVENT DATE: 20210318
